FAERS Safety Report 12450644 (Version 1)
Quarter: 2016Q2

REPORT INFORMATION
  Report Type: Spontaneous
  Country: US (occurrence: None)
  Receive Date: 20160608
  Receipt Date: 20160608
  Transmission Date: 20160815
  Serious: No
  Sender: FDA-Public Use
  Company Number: None

PATIENT
  Age: 53 Year
  Sex: Male

DRUGS (1)
  1. ENBREL [Suspect]
     Active Substance: ETANERCEPT

REACTIONS (4)
  - Flushing [None]
  - Nasopharyngitis [None]
  - Dizziness [None]
  - Hyperhidrosis [None]

NARRATIVE: CASE EVENT DATE: 20160607
